FAERS Safety Report 19710589 (Version 1)
Quarter: 2021Q3

REPORT INFORMATION
  Report Type: Spontaneous
  Country: EG (occurrence: EG)
  Receive Date: 20210816
  Receipt Date: 20210816
  Transmission Date: 20211014
  Serious: Yes (Congenital Anomaly)
  Sender: FDA-Public Use
  Company Number: EG-NOVOPROD-837799

PATIENT

DRUGS (1)
  1. MIXTARD 30 HM PENFILL [Suspect]
     Active Substance: INSULIN HUMAN
     Indication: DIABETES MELLITUS
     Dosage: UNK
     Route: 064

REACTIONS (4)
  - Cytogenetic abnormality [Unknown]
  - Hyperglycaemia [Unknown]
  - Blindness congenital [Unknown]
  - Foetal exposure during pregnancy [Recovered/Resolved]
